FAERS Safety Report 5164330-0 (Version None)
Quarter: 2006Q4

REPORT INFORMATION
  Report Type: 
  Country: None (occurrence: None)
  Receive Date: 20061205
  Receipt Date: 20030331
  Transmission Date: 20070319
  Serious: No
  Sender: FDA-Public Use
  Company Number: US-ELI_LILLY_AND_COMPANY-USA030332798

PATIENT
  Age: 37 Year
  Sex: Female
  Weight: 80 kg

DRUGS (8)
  1. PROZAC [Suspect]
     Indication: DYSTHYMIC DISORDER
     Dosage: 30 MG, DAILY (1/D)
     Route: 048
     Dates: start: 19910101
  2. PROZAC [Suspect]
     Dosage: 70 MG, DAILY (1/D)
     Route: 048
  3. PROZAC [Suspect]
     Dosage: 80 MG, DAILY (1/D)
     Route: 048
  4. PRENATAL VITAMINS [Concomitant]
     Indication: PREGNANCY
     Dosage: UNK, OTHER
     Route: 048
  5. ATIVAN [Concomitant]
     Dosage: UNK, UNKNOWN
  6. TYLENOL                                 /USA/ [Concomitant]
     Indication: HEADACHE
     Dosage: UNK, AS NEEDED
  7. MAGNESIUM SULFATE [Concomitant]
  8. EXCEDRIN (MIGRAINE) [Concomitant]

REACTIONS (3)
  - DEPRESSION [None]
  - DRUG EXPOSURE DURING PREGNANCY [None]
  - GESTATIONAL DIABETES [None]
